FAERS Safety Report 19025645 (Version 1)
Quarter: 2021Q1

REPORT INFORMATION
  Report Type: Report from Study
  Country: JP (occurrence: JP)
  Receive Date: 20210318
  Receipt Date: 20210318
  Transmission Date: 20210420
  Serious: Yes (Other)
  Sender: FDA-Public Use
  Company Number: JP-SUN PHARMACEUTICAL INDUSTRIES LTD-2021R1-286028

PATIENT

DRUGS (5)
  1. VINCRISTINE [Suspect]
     Active Substance: VINCRISTINE
     Indication: CHEMOTHERAPY
     Dosage: 1 MILLIGRAM, QD (ON DAY 2)
     Route: 042
  2. METHOTREXATE. [Suspect]
     Active Substance: METHOTREXATE
     Indication: CHEMOTHERAPY
     Dosage: 20 MILLIGRAM, QD
     Route: 048
  3. ETOPOSIDE. [Suspect]
     Active Substance: ETOPOSIDE
     Indication: CHEMOTHERAPY
     Dosage: 25 MILLIGRAM, QD
     Route: 065
  4. SOBUZOXANE [Suspect]
     Active Substance: SOBUZOXANE
     Indication: CHEMOTHERAPY
     Dosage: 400 MILLIGRAM, QD
     Route: 048
  5. HYDROCORTISONE. [Suspect]
     Active Substance: HYDROCORTISONE
     Indication: CHEMOTHERAPY
     Dosage: 100 MILLIGRAM, QD
     Route: 065

REACTIONS (1)
  - Febrile neutropenia [Unknown]
